FAERS Safety Report 20873642 (Version 1)
Quarter: 2022Q2

REPORT INFORMATION
  Report Type: Spontaneous
  Country: FR (occurrence: FR)
  Receive Date: 20220525
  Receipt Date: 20220525
  Transmission Date: 20220720
  Serious: Yes (Death, Other)
  Sender: FDA-Public Use
  Company Number: None

PATIENT
  Age: 55 Year
  Sex: Female
  Weight: 59 kg

DRUGS (5)
  1. AZTREONAM [Suspect]
     Active Substance: AZTREONAM
     Indication: Infection
     Route: 042
     Dates: start: 20220114, end: 20220117
  2. IPRATROPIUM BROMIDE [Concomitant]
     Active Substance: IPRATROPIUM BROMIDE
  3. TERBUTALINE SULFATE [Concomitant]
     Active Substance: TERBUTALINE SULFATE
  4. HEPARIN CALCIUM [Concomitant]
     Active Substance: HEPARIN CALCIUM
  5. FUROSEMIDE [Concomitant]
     Active Substance: FUROSEMIDE

REACTIONS (1)
  - Encephalopathy [Fatal]

NARRATIVE: CASE EVENT DATE: 20220117
